FAERS Safety Report 25966421 (Version 1)
Quarter: 2025Q4

REPORT INFORMATION
  Report Type: Spontaneous
  Country: US (occurrence: US)
  Receive Date: 20251028
  Receipt Date: 20251028
  Transmission Date: 20260117
  Serious: No
  Sender: PADAGIS
  Company Number: US-PADAGIS-2025PAD01324

PATIENT

DRUGS (2)
  1. IMIQUIMOD [Suspect]
     Active Substance: IMIQUIMOD
     Indication: Dermatitis
     Dosage: ONCE A DAY EVERY OTHER DAY ON MONDAY WEDNESDAY FRIDAY FOR 2 WEEKS AND STOPPED FOR 2 WEEKS AND WENT B
     Route: 065
     Dates: start: 202506
  2. IMIQUIMOD [Suspect]
     Active Substance: IMIQUIMOD
     Indication: Precancerous skin lesion

REACTIONS (3)
  - Application site scab [Unknown]
  - Inappropriate schedule of product administration [Unknown]
  - Product quality issue [Unknown]
